FAERS Safety Report 24660903 (Version 1)
Quarter: 2024Q4

REPORT INFORMATION
  Report Type: Spontaneous
  Country: US (occurrence: US)
  Receive Date: 20241125
  Receipt Date: 20241125
  Transmission Date: 20250115
  Serious: Yes (Other)
  Sender: AVADEL CNS PHARMACEUTICALS, LLC
  Company Number: US-AVADEL CNS PHARMACEUTICALS, LLC-2024AVA01939

PATIENT
  Sex: Female
  Weight: 48.98 kg

DRUGS (4)
  1. LUMRYZ [Suspect]
     Active Substance: SODIUM OXYBATE
     Indication: Narcolepsy
     Dosage: 4.5 G, ONCE NIGHTLY AT BEDTIME
     Route: 048
     Dates: start: 2024, end: 202410
  2. LUMRYZ [Suspect]
     Active Substance: SODIUM OXYBATE
     Indication: Cataplexy
     Dosage: 2 OF THE 4.5 G PACKETS (9 G), ONCE NIGHTLY AT BEDTIME
     Route: 048
     Dates: start: 202410
  3. PROGESTERONE [Concomitant]
     Active Substance: PROGESTERONE
  4. TESTOSTERONE [Concomitant]
     Active Substance: TESTOSTERONE
     Route: 061

REACTIONS (10)
  - Suicidal ideation [Recovered/Resolved]
  - Toxicity to various agents [Recovered/Resolved]
  - Initial insomnia [Unknown]
  - Frustration tolerance decreased [Unknown]
  - Poor quality sleep [Unknown]
  - Tinnitus [Recovered/Resolved]
  - Crying [Unknown]
  - Anxiety [Not Recovered/Not Resolved]
  - Panic reaction [Unknown]
  - Wrong technique in product usage process [Unknown]

NARRATIVE: CASE EVENT DATE: 20240101
